FAERS Safety Report 21902838 (Version 1)
Quarter: 2023Q1

REPORT INFORMATION
  Report Type: Spontaneous
  Country: JP (occurrence: None)
  Receive Date: 20230124
  Receipt Date: 20230124
  Transmission Date: 20230418
  Serious: Yes (Hospitalization)
  Sender: FDA-Public Use
  Company Number: JP-ACS-20230016

PATIENT
  Age: 9 Year
  Sex: Male
  Weight: 15.8 kg

DRUGS (2)
  1. PENICILLIN G [Suspect]
     Active Substance: PENICILLIN G
     Indication: Endocarditis
     Dosage: PCG (1 MILLION U EVERY 6HR) FOR A 15.8 KG CHILD (253000 U/KG/DAY) (110*6)
  2. GENTAMICIN [Concomitant]
     Active Substance: GENTAMICIN
     Indication: Endocarditis

REACTIONS (1)
  - Cystitis haemorrhagic [Recovered/Resolved]
